FAERS Safety Report 9452683 (Version 2)
Quarter: 2013Q4

REPORT INFORMATION
  Report Type: Spontaneous
  Country: US (occurrence: US)
  Receive Date: 20130812
  Receipt Date: 20131126
  Transmission Date: 20140711
  Serious: Yes (Hospitalization, Other)
  Sender: FDA-Public Use
  Company Number: US-ROCHE-798719

PATIENT
  Age: 14 Year
  Sex: Female

DRUGS (2)
  1. ACCUTANE [Suspect]
     Indication: ACNE
     Dosage: 40 - 70 MG
     Route: 048
     Dates: start: 199812, end: 199906
  2. ACCUTANE [Suspect]
     Dosage: 40 MG
     Route: 048
     Dates: start: 20011107, end: 200204

REACTIONS (11)
  - Crohn^s disease [Unknown]
  - Irritable bowel syndrome [Unknown]
  - Anal fissure [Unknown]
  - Anal abscess [Unknown]
  - Suicidal ideation [Unknown]
  - Depression [Unknown]
  - Lip dry [Unknown]
  - Blood cholesterol increased [Unknown]
  - Dry skin [Unknown]
  - Dry skin [Unknown]
  - Headache [Unknown]
